FAERS Safety Report 16465484 (Version 3)
Quarter: 2019Q3

REPORT INFORMATION
  Report Type: Spontaneous
  Country: JP (occurrence: JP)
  Receive Date: 20190621
  Receipt Date: 20190822
  Transmission Date: 20191004
  Serious: Yes (Hospitalization, Other)
  Sender: FDA-Public Use
  Company Number: JP-SHIRE-JP201919895AA

PATIENT
  Age: 45 Year
  Sex: Male
  Weight: 74 kg

DRUGS (4)
  1. AGRYLIN [Suspect]
     Active Substance: ANAGRELIDE HYDROCHLORIDE
     Indication: ESSENTIAL THROMBOCYTHAEMIA
     Dosage: 1.5 MG/DAY
     Route: 048
     Dates: start: 20150724, end: 20190331
  2. BAYASPIRIN [Concomitant]
     Active Substance: ASPIRIN
     Indication: PRODUCT USED FOR UNKNOWN INDICATION
     Dosage: 100 MILLIGRAM/DAY
     Route: 048
     Dates: start: 2012
  3. OPALMON [Concomitant]
     Active Substance: LIMAPROST
     Indication: SKIN ULCER
     Dosage: UNK
     Route: 065
     Dates: start: 2015
  4. HYDREA [Concomitant]
     Active Substance: HYDROXYUREA
     Indication: ESSENTIAL THROMBOCYTHAEMIA
     Dosage: UNK
     Route: 048
     Dates: start: 2011, end: 2011

REACTIONS (1)
  - Cardiac failure acute [Recovered/Resolved]

NARRATIVE: CASE EVENT DATE: 20190330
